FAERS Safety Report 17121961 (Version 1)
Quarter: 2019Q4

REPORT INFORMATION
  Report Type: Spontaneous
  Country: GB (occurrence: GB)
  Receive Date: 20191206
  Receipt Date: 20191206
  Transmission Date: 20200122
  Serious: Yes (Death, Other)
  Sender: FDA-Public Use
  Company Number: GB-PFIZER INC-2019527789

PATIENT
  Age: 5 Decade
  Sex: Female

DRUGS (1)
  1. IBRANCE [Suspect]
     Active Substance: PALBOCICLIB
     Dosage: 125 MG, UNK
     Dates: start: 201901, end: 2019

REACTIONS (3)
  - Neutropenia [Unknown]
  - Blood bilirubin abnormal [Unknown]
  - Death [Fatal]

NARRATIVE: CASE EVENT DATE: 2019
